FAERS Safety Report 4728236-0 (Version None)
Quarter: 2005Q3

REPORT INFORMATION
  Report Type: 
  Country: None (occurrence: None)
  Receive Date: 20050727
  Receipt Date: 20050606
  Transmission Date: 20060218
  Serious: Yes (Hospitalization)
  Sender: FDA-Public Use
  Company Number: 2005FR-00148

PATIENT
  Age: 73 Year
  Sex: Male

DRUGS (7)
  1. ASPIRIN [Suspect]
     Indication: MYOCARDIAL ISCHAEMIA
     Dosage: 75 MG OD ORAL
     Route: 048
     Dates: end: 20050505
  2. LEVOTHYROXINE SODIUM [Concomitant]
  3. FINASTERIDE [Concomitant]
  4. NIFEDIPINE [Concomitant]
  5. OMEPRAZOLE [Concomitant]
  6. ALFUZOSIN [Concomitant]
  7. GLYCERYL TRINITRATE [Concomitant]

REACTIONS (3)
  - CHEST PAIN [None]
  - HAEMOGLOBIN DECREASED [None]
  - MELAENA [None]
